FAERS Safety Report 24979031 (Version 1)
Quarter: 2025Q1

REPORT INFORMATION
  Report Type: Report from Study
  Country: US (occurrence: None)
  Receive Date: 20250218
  Receipt Date: 20250218
  Transmission Date: 20250409
  Serious: Yes (Hospitalization, Other)
  Sender: ALEXION PHARMACEUTICALS
  Company Number: US-AstraZeneca-2013SE02879

PATIENT
  Age: 54 Year
  Weight: 88.451 kg

DRUGS (9)
  1. SEROQUEL [Suspect]
     Active Substance: QUETIAPINE FUMARATE
     Indication: Depression
  2. SEROQUEL [Suspect]
     Active Substance: QUETIAPINE FUMARATE
  3. NEXIUM [Suspect]
     Active Substance: ESOMEPRAZOLE MAGNESIUM
     Indication: Gastrooesophageal reflux disease
     Dosage: 40 MILLIGRAM, QD
  4. NEXIUM [Suspect]
     Active Substance: ESOMEPRAZOLE MAGNESIUM
     Indication: Dyspepsia
  5. NEXIUM [Suspect]
     Active Substance: ESOMEPRAZOLE MAGNESIUM
     Indication: Gastrooesophageal reflux disease
  6. METOPROLOL SUCCINATE [Suspect]
     Active Substance: METOPROLOL SUCCINATE
     Indication: Heart rate abnormal
     Dosage: 25 MILLIGRAM, QD
  7. CLONAZEPAM [Concomitant]
     Active Substance: CLONAZEPAM
     Indication: Depression
  8. MICARDIS [Concomitant]
     Active Substance: TELMISARTAN
     Indication: Hypertension
     Dosage: 40 MILLIGRAM, QD
  9. SIMVASTATIN [Concomitant]
     Active Substance: SIMVASTATIN
     Indication: Blood cholesterol abnormal
     Dosage: 40 MILLIGRAM, QD

REACTIONS (20)
  - Heart rate increased [Unknown]
  - Meningitis [Unknown]
  - Vomiting [Unknown]
  - Dyspepsia [Unknown]
  - Hallucination, visual [Unknown]
  - Sleep disorder due to general medical condition, insomnia type [Unknown]
  - Illness [Unknown]
  - Road traffic accident [Unknown]
  - Visual impairment [Unknown]
  - Emotional distress [Unknown]
  - Insomnia [Unknown]
  - Diverticulitis [Unknown]
  - Pain [Unknown]
  - Hypertension [Unknown]
  - Depression [Unknown]
  - Musculoskeletal stiffness [Unknown]
  - Neck pain [Unknown]
  - Gastrointestinal disorder [Unknown]
  - Hypoacusis [Unknown]
  - Intentional product use issue [Unknown]
